FAERS Safety Report 22598600 (Version 1)
Quarter: 2023Q2

REPORT INFORMATION
  Report Type: Spontaneous
  Country: IN (occurrence: None)
  Receive Date: 20230614
  Receipt Date: 20230614
  Transmission Date: 20230722
  Serious: No
  Sender: FDA-Public Use
  Company Number: IN-Umedica-000429

PATIENT
  Age: 26 Year
  Sex: Male

DRUGS (1)
  1. SILDENAFIL [Suspect]
     Active Substance: SILDENAFIL
     Indication: Product used for unknown indication
     Route: 065

REACTIONS (4)
  - Headache [Recovered/Resolved]
  - Flushing [Recovered/Resolved]
  - Dyspepsia [Recovered/Resolved]
  - Visual impairment [Recovered/Resolved]
